FAERS Safety Report 7499182-7 (Version None)
Quarter: 2011Q2

REPORT INFORMATION
  Report Type: 
  Country: None (occurrence: None)
  Receive Date: 20110524
  Receipt Date: 20110511
  Transmission Date: 20111010
  Serious: Yes (Hospitalization, Other)
  Sender: FDA-Public Use
  Company Number: US-ELI_LILLY_AND_COMPANY-US201008001021

PATIENT
  Sex: Female

DRUGS (14)
  1. FORTEO [Suspect]
     Indication: OSTEOPOROSIS
     Dosage: 20 UG, DAILY (1/D)
     Route: 065
     Dates: start: 20100401, end: 20100101
  2. NITROGLYCERIN [Concomitant]
     Dosage: UNK, OTHER
  3. VERPAMIL HCL [Concomitant]
     Dosage: 400 MG, UNK
  4. SERTRALINE HYDROCHLORIDE [Concomitant]
     Dosage: 100 MG, QD
  5. FORTEO [Suspect]
     Dosage: 20 UG, DAILY (1/D)
     Route: 065
  6. FORTEO [Suspect]
     Dosage: 20 UG, DAILY (1/D)
     Route: 065
     Dates: start: 20100701
  7. ASPIRIN [Concomitant]
     Dosage: 325 MG, UNK
  8. PLAVIX [Concomitant]
     Dosage: 75 UNK, UNK
  9. HYDROCHLOROTHIAZIDE [Concomitant]
     Dosage: 25 MG, UNK
  10. VITAMIN D [Concomitant]
     Dosage: UNK, 2/W
  11. SIMVASTATIN [Concomitant]
     Dosage: 40 MG, UNK
  12. FORTEO [Suspect]
     Dosage: 20 UG, DAILY (1/D)
     Route: 065
     Dates: start: 20100101, end: 20100601
  13. CELEBREX [Concomitant]
     Dosage: 200 MG, UNK
  14. OMEPRAZOLE [Concomitant]
     Dosage: 20 MG, UNK

REACTIONS (5)
  - CHEST PAIN [None]
  - PAIN IN EXTREMITY [None]
  - CORONARY ARTERY OCCLUSION [None]
  - FATIGUE [None]
  - INSOMNIA [None]
